FAERS Safety Report 8399811-X (Version None)
Quarter: 2012Q2

REPORT INFORMATION
  Report Type: 
  Country: None (occurrence: None)
  Receive Date: 20120531
  Receipt Date: 20120518
  Transmission Date: 20120825
  Serious: Yes (Hospitalization, Other)
  Sender: FDA-Public Use
  Company Number: GB-MYLANLABS-2012S1009820

PATIENT
  Age: 43 Year
  Sex: Female

DRUGS (4)
  1. BUSPIRONE HCL [Suspect]
     Indication: FLATULENCE
     Route: 048
     Dates: start: 20120227, end: 20120227
  2. ACETAMINOPHEN [Concomitant]
     Indication: HEADACHE
  3. AMITRIPTYLINE HCL [Concomitant]
     Indication: MIGRAINE
     Dates: start: 20120510
  4. BUSPIRONE HCL [Suspect]
     Route: 048
     Dates: start: 20120227, end: 20120227

REACTIONS (8)
  - MEDICATION ERROR [None]
  - VOMITING [None]
  - PARAESTHESIA [None]
  - OVERDOSE [None]
  - HYPOAESTHESIA [None]
  - TREMOR [None]
  - DIZZINESS [None]
  - HEADACHE [None]
